FAERS Safety Report 22239268 (Version 2)
Quarter: 2023Q2

REPORT INFORMATION
  Report Type: Spontaneous
  Country: CA (occurrence: CA)
  Receive Date: 20230421
  Receipt Date: 20230523
  Transmission Date: 20230721
  Serious: Yes (Other)
  Sender: FDA-Public Use
  Company Number: CA-GLAXOSMITHKLINE-CA2023AMR056749

PATIENT

DRUGS (1)
  1. FLUTICASONE PROPIONATE\SALMETEROL XINAFOATE [Suspect]
     Active Substance: FLUTICASONE PROPIONATE\SALMETEROL XINAFOATE
     Indication: Product used for unknown indication
     Dosage: UNK

REACTIONS (8)
  - Loss of consciousness [Unknown]
  - Sleep disorder [Unknown]
  - Tooth fracture [Unknown]
  - Muscle strain [Unknown]
  - Dyspnoea [Unknown]
  - Exercise tolerance decreased [Unknown]
  - Drug ineffective [Unknown]
  - Product complaint [Unknown]
